FAERS Safety Report 20984044 (Version 1)
Quarter: 2022Q2

REPORT INFORMATION
  Report Type: Spontaneous
  Country: US (occurrence: US)
  Receive Date: 20220621
  Receipt Date: 20220621
  Transmission Date: 20220720
  Serious: Yes (Hospitalization, Other)
  Sender: FDA-Public Use
  Company Number: US-MLMSERVICE-20220520-3573271-1

PATIENT
  Age: 54 Year
  Sex: Male

DRUGS (9)
  1. DIVALPROEX SODIUM [Suspect]
     Active Substance: DIVALPROEX SODIUM
     Indication: Hostility
     Dosage: 250 MILLIGRAM, ONCE A DAY (HIS EVENING DOSE OF DVP WAS TAPERED TO 250 MG)
     Route: 065
  2. DIVALPROEX SODIUM [Suspect]
     Active Substance: DIVALPROEX SODIUM
     Indication: Aggression
     Dosage: 500 MILLIGRAM, TWO TIMES A DAY
     Route: 065
  3. OLANZAPINE [Suspect]
     Active Substance: OLANZAPINE
     Indication: Schizophrenia
     Dosage: 5 MILLIGRAM, ONCE A DAY (5 MG EVERY MORNING)
     Route: 065
  4. OLANZAPINE [Suspect]
     Active Substance: OLANZAPINE
     Dosage: 15 MILLIGRAM, ONCE A DAY (15 MG EVERY EVENING)
     Route: 065
  5. OLANZAPINE [Suspect]
     Active Substance: OLANZAPINE
     Dosage: 20 MILLIGRAM, ONCE A DAY (RISPERIDONE WAS CROSS-TITRATED TO OLANZAPINE 20 MG/DAY IN DIVIDED DOSING O
     Route: 065
  6. RISPERIDONE [Suspect]
     Active Substance: RISPERIDONE
     Indication: Hostility
     Dosage: 6 MILLIGRAM, ONCE A DAY (6 MG/DAY IN DIVIDED DOSING OVER 9 DAYS)
     Route: 065
  7. RISPERIDONE [Suspect]
     Active Substance: RISPERIDONE
     Indication: Aggression
     Dosage: 2 MILLIGRAM, ONCE A DAY (2 MG AT BEDTIME) (ORAL DISINTEGRATING)
     Route: 048
  8. RISPERIDONE [Suspect]
     Active Substance: RISPERIDONE
     Indication: Schizophrenia
  9. METHAMPHETAMINE [Suspect]
     Active Substance: METHAMPHETAMINE
     Indication: Product used for unknown indication
     Dosage: UNK
     Route: 065

REACTIONS (2)
  - Neutropenia [Recovered/Resolved]
  - Condition aggravated [Recovered/Resolved]
